FAERS Safety Report 10068505 (Version 4)
Quarter: 2014Q2

REPORT INFORMATION
  Report Type: Spontaneous
  Country: US (occurrence: US)
  Receive Date: 20140409
  Receipt Date: 20140523
  Transmission Date: 20141212
  Serious: Yes (Other)
  Sender: FDA-Public Use
  Company Number: US-JNJFOC-20131116551

PATIENT
  Age: 75 Year
  Sex: Female
  Weight: 104.78 kg

DRUGS (20)
  1. XARELTO [Suspect]
     Indication: CEREBROVASCULAR ACCIDENT PROPHYLAXIS
     Route: 048
     Dates: start: 20131101, end: 20131120
  2. XARELTO [Suspect]
     Indication: ATRIAL FIBRILLATION
     Route: 048
     Dates: start: 20131101, end: 20131120
  3. CALCIUM+VITAMIN D [Concomitant]
     Route: 048
  4. VITAMIN D [Concomitant]
     Route: 048
  5. SINGULAIR [Concomitant]
     Route: 048
  6. ALLOPURINOL [Concomitant]
     Dosage: 1/2 ONCE A DAY
     Route: 048
  7. BACTROBAN [Concomitant]
     Route: 065
  8. COMBIVENT [Concomitant]
     Dosage: 2 PUFFS AS NECESSARY
     Route: 065
  9. OMEPRAZOLE [Concomitant]
     Dosage: 2 PUFFS
     Route: 065
  10. POTASSIUM [Concomitant]
     Dosage: 2 PUFFS
     Route: 065
  11. CALCIUM [Concomitant]
     Dosage: 2 PUFFS
     Route: 065
  12. ADVAIR [Concomitant]
     Dosage: 250/50 2 TIMES A DAY(ONE PUFF)
     Route: 065
  13. LASIX [Concomitant]
     Dosage: 0.5 IN 1 DAY
     Route: 048
  14. VAGIFEM [Concomitant]
     Dosage: 3 TIMES A WEEK
     Route: 067
  15. ESTRACE [Concomitant]
     Dosage: 4 TIMES A WEEK
     Route: 065
  16. IMDUR [Concomitant]
     Dosage: 1 AND HALF PER DAY
     Route: 048
  17. VITAMIN C [Concomitant]
     Dosage: 1 AND HALF PER DAY
     Route: 065
  18. METOPROLOL TARTRATE [Concomitant]
     Dosage: 1 TAB Q AM AND 2 Q PM
     Route: 048
  19. PERCOCET [Concomitant]
     Dosage: 5/325 SHE TAKES Q8H
     Route: 065
  20. PREDNISOLONE [Concomitant]
     Route: 065

REACTIONS (5)
  - Hypersensitivity vasculitis [Not Recovered/Not Resolved]
  - Prothrombin time prolonged [Unknown]
  - Oedema peripheral [Unknown]
  - Purpura [Recovering/Resolving]
  - Cellulitis [Unknown]
